FAERS Safety Report 6696465-5 (Version None)
Quarter: 2010Q2

REPORT INFORMATION
  Report Type: 
  Country: None (occurrence: None)
  Receive Date: 20100426
  Receipt Date: 20100414
  Transmission Date: 20101027
  Serious: Yes (Other)
  Sender: FDA-Public Use
  Company Number: JP-ROCHE-698417

PATIENT
  Age: 61 Year
  Sex: Male

DRUGS (2)
  1. PEGASYS [Suspect]
     Indication: HEPATITIS C
     Dosage: NOTE: DOSAGE IS UNCERTAIN
     Route: 058
     Dates: start: 20090301
  2. COPEGUS [Suspect]
     Indication: HEPATITIS
     Dosage: NOTE: DOSAGE IS UNCERTAIN
     Route: 048
     Dates: start: 20090301

REACTIONS (1)
  - PENILE ULCERATION [None]
